FAERS Safety Report 5828122-9 (Version None)
Quarter: 2008Q3

REPORT INFORMATION
  Report Type: 
  Country: None (occurrence: None)
  Receive Date: 20080730
  Receipt Date: 20080730
  Transmission Date: 20090109
  Serious: Yes (Hospitalization)
  Sender: FDA-Public Use
  Company Number: None

PATIENT
  Age: 65 Year
  Sex: Male
  Weight: 81 kg

DRUGS (1)
  1. PROZAC [Suspect]

REACTIONS (8)
  - AGGRESSION [None]
  - HYPERSOMNIA [None]
  - HYPOPHAGIA [None]
  - NERVOUS SYSTEM DISORDER [None]
  - NERVOUSNESS [None]
  - NIGHTMARE [None]
  - OCULAR HYPERAEMIA [None]
  - PHARMACEUTICAL PRODUCT COMPLAINT [None]
